FAERS Safety Report 21184900 (Version 1)
Quarter: 2022Q3

REPORT INFORMATION
  Report Type: Spontaneous
  Country: US (occurrence: None)
  Receive Date: 20220806
  Receipt Date: 20220806
  Transmission Date: 20221027
  Serious: Yes (Other)
  Sender: FDA-Public Use
  Company Number: None

PATIENT
  Age: 50 Year
  Sex: Male
  Weight: 108 kg

DRUGS (1)
  1. CITROMA [Suspect]
     Active Substance: MAGNESIUM CITRATE
     Indication: Colonoscopy
     Dosage: OTHER QUANTITY : 296 OUNCE(S);?FREQUENCY : AS NEEDED;?
     Route: 048
     Dates: start: 20220604, end: 20220604

REACTIONS (6)
  - Diarrhoea [None]
  - Muscle spasms [None]
  - Depressed level of consciousness [None]
  - Recalled product administered [None]
  - Hypoaesthesia [None]
  - Cold sweat [None]

NARRATIVE: CASE EVENT DATE: 20220613
